FAERS Safety Report 16633995 (Version 1)
Quarter: 2019Q3

REPORT INFORMATION
  Report Type: Spontaneous
  Country: CN (occurrence: CN)
  Receive Date: 20190725
  Receipt Date: 20190725
  Transmission Date: 20191004
  Serious: Yes (Hospitalization, Other)
  Sender: FDA-Public Use
  Company Number: CN-009507513-1907CHN012135

PATIENT
  Age: 45 Year
  Sex: Male

DRUGS (1)
  1. PEMBROLIZUMAB. [Suspect]
     Active Substance: PEMBROLIZUMAB
     Indication: NASOPHARYNGEAL CANCER
     Dosage: 1.3 MILLIGRAM/KILOGRAM OF BODY WEIGHT
     Dates: start: 20180801

REACTIONS (4)
  - Immune-mediated adverse reaction [Recovering/Resolving]
  - Product use in unapproved indication [Unknown]
  - Immune-mediated pneumonitis [Unknown]
  - Myocarditis [Recovering/Resolving]

NARRATIVE: CASE EVENT DATE: 20180805
